FAERS Safety Report 10096826 (Version 1)
Quarter: 2014Q2

REPORT INFORMATION
  Report Type: Spontaneous
  Country: US (occurrence: US)
  Receive Date: 20140422
  Receipt Date: 20140422
  Transmission Date: 20141212
  Serious: Yes (Hospitalization)
  Sender: FDA-Public Use
  Company Number: US-NOVEN-14US009343

PATIENT
  Age: 48 Year
  Sex: Female
  Weight: 102.4 kg

DRUGS (4)
  1. DAYTRANA [Suspect]
     Indication: ATTENTION DEFICIT/HYPERACTIVITY DISORDER
     Dosage: 20 MG, QD
     Route: 062
     Dates: start: 2007, end: 20070827
  2. CYMBALTA [Concomitant]
     Indication: DEPRESSION
     Dosage: UNK
     Route: 048
     Dates: end: 2007
  3. LORAZEPAM [Concomitant]
     Indication: ANXIETY
     Dosage: 1 MG, TID
     Route: 048
  4. TRAZODONE [Concomitant]
     Indication: INSOMNIA
     Dosage: UNK MG, QD
     Route: 048

REACTIONS (4)
  - Myocardial infarction [Unknown]
  - Drug prescribing error [Recovered/Resolved]
  - Off label use [Recovered/Resolved]
  - Labelled drug-disease interaction medication error [Recovered/Resolved]
